FAERS Safety Report 11064302 (Version 1)
Quarter: 2015Q2

REPORT INFORMATION
  Report Type: Spontaneous
  Country: US (occurrence: US)
  Receive Date: 20150424
  Receipt Date: 20150424
  Transmission Date: 20150821
  Serious: Yes (Hospitalization, Other)
  Sender: FDA-Public Use
  Company Number: US-009507513-1504USA014571

PATIENT
  Age: 57 Year
  Sex: Male

DRUGS (5)
  1. CORTISONE [Suspect]
     Active Substance: CORTISONE\HYDROCORTISONE
     Dosage: UNK
     Dates: end: 20150327
  2. PROTONIX [Interacting]
     Active Substance: PANTOPRAZOLE SODIUM
     Dosage: 40 MG, UNK
     Dates: start: 2007, end: 201502
  3. PRINIVIL [Interacting]
     Active Substance: LISINOPRIL
     Dosage: UNK
     Route: 048
  4. PRINIVIL [Interacting]
     Active Substance: LISINOPRIL
     Dosage: A DOSE OF 40 MG TABLET
     Route: 048
     Dates: start: 20150403, end: 20150403
  5. AMLACTIN [Suspect]
     Active Substance: AMMONIUM LACTATE
     Dosage: UNK

REACTIONS (19)
  - Drug interaction [Unknown]
  - Electrolyte imbalance [Unknown]
  - Weight decreased [Unknown]
  - Chest pain [Unknown]
  - Seizure like phenomena [Unknown]
  - Drug hypersensitivity [Unknown]
  - Gastrooesophageal reflux disease [Not Recovered/Not Resolved]
  - Infection [Unknown]
  - Heart rate decreased [Unknown]
  - Erythema [Unknown]
  - Drug ineffective [Unknown]
  - Abdominal discomfort [Recovered/Resolved]
  - Cardiac disorder [Unknown]
  - Hypertensive crisis [Unknown]
  - Adverse event [Unknown]
  - Urticaria [Unknown]
  - Urticaria [Not Recovered/Not Resolved]
  - Blood pressure increased [Unknown]
  - Tremor [Unknown]

NARRATIVE: CASE EVENT DATE: 2003
